FAERS Safety Report 5278255-3 (Version None)
Quarter: 2007Q1

REPORT INFORMATION
  Report Type: 
  Country: None (occurrence: None)
  Receive Date: 20070328
  Receipt Date: 20070319
  Transmission Date: 20070707
  Serious: Yes (Hospitalization)
  Sender: FDA-Public Use
  Company Number: US-JNJFOC-20070304628

PATIENT
  Sex: Female
  Weight: 58.97 kg

DRUGS (10)
  1. FENTANYL TRANSDERMAL SYSTEM [Suspect]
     Indication: BACK PAIN
     Route: 062
  2. DURAGESIC-100 [Suspect]
     Route: 062
  3. DURAGESIC-100 [Suspect]
     Route: 062
  4. DURAGESIC-100 [Suspect]
     Indication: BACK PAIN
     Route: 062
  5. DARVOCET [Concomitant]
     Indication: PAIN
  6. COZAAR [Concomitant]
     Indication: HYPERTENSION
  7. HYDROCHLOROTHIAZIDE [Concomitant]
     Indication: HYPERTENSION
  8. PREVACID [Concomitant]
     Indication: HYPERCHLORHYDRIA
  9. NEURONTIN [Concomitant]
     Indication: NERVOUSNESS
  10. NORVASC [Concomitant]
     Indication: BLOOD PRESSURE

REACTIONS (7)
  - DRUG INEFFECTIVE [None]
  - DRUG WITHDRAWAL SYNDROME [None]
  - EATING DISORDER [None]
  - FEELING ABNORMAL [None]
  - SOMNOLENCE [None]
  - VOLVULUS [None]
  - WEIGHT DECREASED [None]
